FAERS Safety Report 9753159 (Version 2)
Quarter: 2015Q3

REPORT INFORMATION
  Report Type: Spontaneous
  Country: US (occurrence: US)
  Receive Date: 20131213
  Receipt Date: 20150805
  Transmission Date: 20151125
  Serious: No
  Sender: FDA-Public Use
  Company Number: US-GILEAD-2010-0026779

PATIENT
  Age: 39 Year
  Sex: Female
  Weight: 94.8 kg

DRUGS (21)
  1. SODIUM CHLORIDE. [Concomitant]
     Active Substance: SODIUM CHLORIDE
  2. CELLCEPT [Concomitant]
     Active Substance: MYCOPHENOLATE MOFETIL\MYCOPHENOLATE MOFETIL HYDROCHLORIDE
  3. DEXTROSE 5% [Concomitant]
     Active Substance: DEXTROSE
  4. DIGOXIN. [Concomitant]
     Active Substance: DIGOXIN
  5. ZYRTEC [Concomitant]
     Active Substance: CETIRIZINE HYDROCHLORIDE
  6. TYLENOL WITH CODEINE [Concomitant]
     Active Substance: ACETAMINOPHEN\CODEINE PHOSPHATE
  7. TYLENOL [Concomitant]
     Active Substance: ACETAMINOPHEN
  8. LETAIRIS [Suspect]
     Active Substance: AMBRISENTAN
     Indication: PULMONARY ARTERIAL HYPERTENSION
     Route: 048
     Dates: start: 20091223
  9. HYDROCHLORTHIAZIDE [Concomitant]
     Active Substance: HYDROCHLOROTHIAZIDE
  10. BONIVA [Concomitant]
     Active Substance: IBANDRONATE SODIUM
  11. GAMUNEX [Concomitant]
     Active Substance: HUMAN IMMUNOGLOBULIN G
  12. DIPHENHYDRAMINE. [Concomitant]
     Active Substance: DIPHENHYDRAMINE
  13. MULTIVITAMIN [Concomitant]
     Active Substance: VITAMINS
  14. OXYGEN. [Concomitant]
     Active Substance: OXYGEN
  15. HEPARIN [Concomitant]
     Active Substance: HEPARIN SODIUM
  16. PAXIL [Concomitant]
     Active Substance: PAROXETINE HYDROCHLORIDE
  17. SPIRONOLACTONE. [Concomitant]
     Active Substance: SPIRONOLACTONE
  18. REMODULIN [Concomitant]
     Active Substance: TREPROSTINIL
  19. PREDNISONE. [Concomitant]
     Active Substance: PREDNISONE
  20. AMOXICILLIN. [Concomitant]
     Active Substance: AMOXICILLIN
  21. EPIPEN [Concomitant]
     Active Substance: EPINEPHRINE

REACTIONS (2)
  - Headache [Unknown]
  - Flushing [Unknown]
